FAERS Safety Report 6655873-9 (Version None)
Quarter: 2010Q1

REPORT INFORMATION
  Report Type: 
  Country: None (occurrence: None)
  Receive Date: 20100329
  Receipt Date: 20100316
  Transmission Date: 20100710
  Serious: Yes (Hospitalization, Other)
  Sender: FDA-Public Use
  Company Number: US-ELI_LILLY_AND_COMPANY-US200911002563

PATIENT
  Sex: Male
  Weight: 98.866 kg

DRUGS (15)
  1. BYETTA [Suspect]
     Indication: TYPE 2 DIABETES MELLITUS
     Dosage: 5 UG, 2/D
     Route: 058
     Dates: start: 20060101
  2. BYETTA [Suspect]
     Dosage: 10 UG, 2/D
     Route: 058
  3. BYETTA [Suspect]
     Dosage: 5 UG, 2/D
     Route: 058
     Dates: start: 20090406, end: 20090501
  4. BYETTA [Suspect]
     Dosage: 10 UG, 2/D
     Route: 058
     Dates: start: 20090501, end: 20091003
  5. CRESTOR /01588602/ [Concomitant]
     Indication: BLOOD CHOLESTEROL
     Dosage: 10 MG, DAILY (1/D)
  6. NIASPAN [Concomitant]
     Indication: BLOOD CHOLESTEROL
     Dosage: 500 MG, EACH EVENING
  7. AVODART [Concomitant]
     Indication: BENIGN PROSTATIC HYPERPLASIA
     Dosage: 0.5 MG, DAILY (1/D)
  8. QUINAPRIL [Concomitant]
     Indication: BLOOD PRESSURE INCREASED
     Dates: end: 20091001
  9. LYRICA [Concomitant]
     Dosage: 50 MG, UNK
  10. GLIPIZIDE [Concomitant]
  11. ZETIA [Concomitant]
  12. UROXATRAL [Concomitant]
  13. FLOMAX [Concomitant]
  14. GLIMEPIRIDE [Concomitant]
  15. METFORMIN [Concomitant]

REACTIONS (7)
  - BLOOD CREATININE INCREASED [None]
  - BLOOD GLUCOSE DECREASED [None]
  - BLOOD GLUCOSE INCREASED [None]
  - CALCULUS URETERIC [None]
  - HYDRONEPHROSIS [None]
  - RENAL FAILURE ACUTE [None]
  - URINARY RETENTION POSTOPERATIVE [None]
